FAERS Safety Report 6087060-X (Version None)
Quarter: 2009Q1

REPORT INFORMATION
  Report Type: 
  Country: None (occurrence: None)
  Receive Date: 20090223
  Receipt Date: 20090213
  Transmission Date: 20090719
  Serious: Yes (Other)
  Sender: FDA-Public Use
  Company Number: PHHY2009SK04484

PATIENT
  Age: 44 Year
  Sex: Female

DRUGS (3)
  1. EUCREAS [Suspect]
     Indication: TYPE 2 DIABETES MELLITUS
     Dosage: 1000/50 MG DAILY
     Route: 048
     Dates: start: 20090120, end: 20090127
  2. PLENDIL [Concomitant]
     Indication: HYPERTENSION
  3. CONCOR [Concomitant]

REACTIONS (4)
  - ANGIOEDEMA [None]
  - FACE OEDEMA [None]
  - OEDEMA PERIPHERAL [None]
  - PERIORBITAL OEDEMA [None]
